FAERS Safety Report 9800021 (Version 2)
Quarter: 2015Q3

REPORT INFORMATION
  Report Type: Spontaneous
  Country: US (occurrence: US)
  Receive Date: 20140106
  Receipt Date: 20150806
  Transmission Date: 20151125
  Serious: No
  Sender: FDA-Public Use
  Company Number: US-GILEAD-2010-0030967

PATIENT
  Age: 83 Year
  Sex: Female
  Weight: 101.15 kg

DRUGS (16)
  1. LETAIRIS [Suspect]
     Active Substance: AMBRISENTAN
     Indication: PULMONARY ARTERIAL HYPERTENSION
     Route: 048
     Dates: start: 20100715
  2. CARVEDILOL. [Concomitant]
     Active Substance: CARVEDILOL
  3. IRON TABLET [Concomitant]
     Active Substance: IRON
  4. SIMVASTATIN. [Concomitant]
     Active Substance: SIMVASTATIN
  5. LEVOXYL [Concomitant]
     Active Substance: LEVOTHYROXINE SODIUM
  6. REVATIO [Concomitant]
     Active Substance: SILDENAFIL CITRATE
     Indication: PULMONARY ARTERIAL HYPERTENSION
     Dates: start: 20100111
  7. PROAIR HFA [Concomitant]
     Active Substance: ALBUTEROL SULFATE
  8. LASIX [Concomitant]
     Active Substance: FUROSEMIDE
  9. ADVAIR 100-50 DISKUS [Concomitant]
  10. NIFEDIPINE ER [Concomitant]
     Active Substance: NIFEDIPINE
  11. BENAZEPRIL [Concomitant]
     Active Substance: BENAZEPRIL HYDROCHLORIDE
  12. POTASSIUM CHLORIDE. [Concomitant]
     Active Substance: POTASSIUM CHLORIDE
  13. NEXIUM [Concomitant]
     Active Substance: ESOMEPRAZOLE MAGNESIUM
  14. ASPIRIN. [Concomitant]
     Active Substance: ASPIRIN
  15. NAPROSYN [Concomitant]
     Active Substance: NAPROXEN
  16. SINGULAIR [Concomitant]
     Active Substance: MONTELUKAST SODIUM

REACTIONS (1)
  - Peripheral swelling [Unknown]
